FAERS Safety Report 6433945-1 (Version None)
Quarter: 2009Q4

REPORT INFORMATION
  Report Type: 
  Country: None (occurrence: None)
  Receive Date: 20091110
  Receipt Date: 20091028
  Transmission Date: 20100525
  Serious: No
  Sender: FDA-Public Use
  Company Number: US-BAYER-200937964NA

PATIENT
  Age: 38 Year
  Sex: Male
  Weight: 91 kg

DRUGS (6)
  1. ULTRAVIST (PHARMACY BULK) [Suspect]
     Indication: COMPUTERISED TOMOGRAM ABDOMEN
     Dosage: TOTAL DAILY DOSE: 80 ML  UNIT DOSE: 500 ML
     Route: 042
     Dates: start: 20091027, end: 20091027
  2. READI-CAT [Concomitant]
     Indication: COMPUTERISED TOMOGRAM ABDOMEN
     Dosage: 2 HOUR PRIOR TO CT
     Route: 048
     Dates: start: 20091027, end: 20091027
  3. PREDNISONE [Concomitant]
     Indication: PREMEDICATION
     Dosage: TOTAL DAILY DOSE: 100 MG  UNIT DOSE: 50 MG
     Dates: start: 20091026, end: 20091026
  4. PREDNISONE [Concomitant]
     Dosage: AS USED: 50 MG
     Dates: start: 20091027, end: 20091027
  5. BENADRYL [Concomitant]
     Indication: PREMEDICATION
     Dosage: AS USED: 50 MG
     Dates: start: 20091027, end: 20091027
  6. ZANTAC [Concomitant]
     Indication: PREMEDICATION
     Dosage: AS USED: 150 MG
     Dates: start: 20091027, end: 20091027

REACTIONS (3)
  - CHILLS [None]
  - TREMOR [None]
  - URTICARIA [None]
